FAERS Safety Report 6860592-X (Version None)
Quarter: 2010Q3

REPORT INFORMATION
  Report Type: 
  Country: None (occurrence: None)
  Receive Date: 20100720
  Receipt Date: 20100709
  Transmission Date: 20110219
  Serious: Yes (Other)
  Sender: FDA-Public Use
  Company Number: US-ROCHE-715217

PATIENT
  Sex: Female
  Weight: 73 kg

DRUGS (11)
  1. ACTEMRA [Suspect]
     Dosage: LAST DOSE REEIVED PRIOR TO SAE ON 01 JULY 2010 DOSE 293 MG
     Route: 042
     Dates: start: 20100607
  2. ACTEMRA [Suspect]
     Route: 042
     Dates: start: 20100701
  3. PREDNISONE [Concomitant]
     Route: 048
  4. PLAQUENIL [Concomitant]
     Route: 048
  5. CALCIUM/VITAMIN D [Concomitant]
     Route: 048
  6. FISH OIL [Concomitant]
     Route: 048
  7. ZYRTEC [Concomitant]
     Route: 048
  8. PERCOCET [Concomitant]
     Dosage: DOSE: 5/325
     Route: 048
  9. IBUPROFEN [Concomitant]
     Dosage: FREQUECY : AS NECASSARY.
     Route: 048
  10. ZANTAC [Concomitant]
     Route: 048
  11. ZOCOR [Concomitant]
     Route: 048

REACTIONS (2)
  - ANAPHYLACTIC REACTION [None]
  - DIARRHOEA [None]
